FAERS Safety Report 5780455-0 (Version None)
Quarter: 2008Q2

REPORT INFORMATION
  Report Type: 
  Country: None (occurrence: None)
  Receive Date: 20080620
  Receipt Date: 20080619
  Transmission Date: 20081010
  Serious: No
  Sender: FDA-Public Use
  Company Number: US-JNJFOC-20080501632

PATIENT
  Sex: Male
  Weight: 80.74 kg

DRUGS (3)
  1. INVEGA [Suspect]
     Indication: TOURETTE'S DISORDER
     Route: 048
  2. INVEGA [Suspect]
     Indication: OBSESSIVE-COMPULSIVE DISORDER
     Route: 048
  3. INVEGA [Suspect]
     Indication: MAJOR DEPRESSION
     Route: 048

REACTIONS (1)
  - PAIN [None]
